FAERS Safety Report 8473550-9 (Version None)
Quarter: 2012Q2

REPORT INFORMATION
  Report Type: 
  Country: None (occurrence: None)
  Receive Date: 20120628
  Receipt Date: 20120619
  Transmission Date: 20120825
  Serious: Yes (Other)
  Sender: FDA-Public Use
  Company Number: US-SANOFI-AVENTIS-2012SA044061

PATIENT
  Sex: Male

DRUGS (2)
  1. ASPIRIN [Suspect]
  2. PLAVIX [Suspect]
     Indication: STENT PLACEMENT
     Dates: start: 20080101

REACTIONS (3)
  - TOOTH DISORDER [None]
  - HAEMORRHAGE [None]
  - SKIN ULCER [None]
